FAERS Safety Report 5413516-6 (Version None)
Quarter: 2007Q3

REPORT INFORMATION
  Report Type: 
  Country: None (occurrence: None)
  Receive Date: 20070814
  Receipt Date: 20070809
  Transmission Date: 20080115
  Serious: Yes (Hospitalization)
  Sender: FDA-Public Use
  Company Number: FR-AVENTIS-200712546FR

PATIENT
  Age: 87 Year
  Sex: Female

DRUGS (6)
  1. LASILIX                            /00032601/ [Suspect]
     Route: 048
     Dates: end: 20070710
  2. PAROXETINE HCL [Suspect]
     Indication: DRUG USE FOR UNKNOWN INDICATION
     Route: 048
  3. OMEPRAZOLE [Suspect]
     Indication: DRUG USE FOR UNKNOWN INDICATION
     Route: 048
     Dates: start: 20070710
  4. ROCEPHIN [Suspect]
     Route: 042
     Dates: start: 20070710
  5. DURAGESIC-100 [Concomitant]
  6. MOVICOL                            /01053601/ [Concomitant]
     Indication: DRUG USE FOR UNKNOWN INDICATION
     Route: 048

REACTIONS (1)
  - HEMIPLEGIA [None]
